FAERS Safety Report 4867366-X (Version None)
Quarter: 2005Q4

REPORT INFORMATION
  Report Type: 
  Country: None (occurrence: None)
  Receive Date: 20051223
  Receipt Date: 20051223
  Transmission Date: 20060501
  Serious: No
  Sender: FDA-Public Use
  Company Number: None

PATIENT
  Age: 28 Year
  Sex: Female
  Weight: 87.5442 kg

DRUGS (2)
  1. CLOZAPINE [Suspect]
     Dosage: 100 MG   AMHS  PO
     Route: 048
  2. VALPROIC ACID [Suspect]
     Dosage: 500 MG   AMHS   PO
     Route: 048

REACTIONS (1)
  - NEUTROPHIL COUNT DECREASED [None]
